FAERS Safety Report 9561698 (Version 2)
Quarter: 2013Q4

REPORT INFORMATION
  Report Type: Spontaneous
  Country: US (occurrence: US)
  Receive Date: 20130927
  Receipt Date: 20131204
  Transmission Date: 20140711
  Serious: No
  Sender: FDA-Public Use
  Company Number: US-BIOGENIDEC-2013BI062354

PATIENT
  Age: 52 Year
  Sex: Female

DRUGS (20)
  1. TECFIDERA [Suspect]
     Indication: MULTIPLE SCLEROSIS
     Route: 048
     Dates: start: 20130530, end: 20130605
  2. TECFIDERA [Suspect]
     Indication: MULTIPLE SCLEROSIS
     Route: 048
     Dates: start: 20130606
  3. TECFIDERA [Suspect]
     Indication: MULTIPLE SCLEROSIS
     Route: 048
     Dates: start: 20130820
  4. TECFIDERA [Suspect]
     Indication: MULTIPLE SCLEROSIS
     Route: 048
  5. TECFIDERA [Suspect]
     Indication: MULTIPLE SCLEROSIS
     Route: 048
     Dates: end: 20130917
  6. TECFIDERA [Suspect]
     Indication: MULTIPLE SCLEROSIS
     Route: 048
     Dates: start: 20130916
  7. LYRICA [Concomitant]
  8. NECON [Concomitant]
  9. PROPRANOLOL [Concomitant]
  10. BACLOFEN [Concomitant]
  11. LAMICTAL [Concomitant]
  12. VALTREX [Concomitant]
  13. IMITREX [Concomitant]
  14. PREXIMET [Concomitant]
  15. LISINOPRIL [Concomitant]
  16. PRISTIQ [Concomitant]
  17. LORAZEPAM [Concomitant]
  18. ZYRTEC [Concomitant]
  19. SUDAFED PE [Concomitant]
  20. BOTOX [Concomitant]

REACTIONS (8)
  - Flatulence [Not Recovered/Not Resolved]
  - Weight decreased [Not Recovered/Not Resolved]
  - Gastrooesophageal reflux disease [Not Recovered/Not Resolved]
  - Decreased appetite [Not Recovered/Not Resolved]
  - Prescribed underdose [Recovered/Resolved]
  - Flushing [Not Recovered/Not Resolved]
  - Abdominal pain [Not Recovered/Not Resolved]
  - Abdominal discomfort [Not Recovered/Not Resolved]
